FAERS Safety Report 18272683 (Version 5)
Quarter: 2022Q3

REPORT INFORMATION
  Report Type: Report from Study
  Country: CA (occurrence: CA)
  Receive Date: 20200916
  Receipt Date: 20220711
  Transmission Date: 20221027
  Serious: Yes (Hospitalization, Other)
  Sender: FDA-Public Use
  Company Number: CA-GLAXOSMITHKLINE-CA2020AMR181729

PATIENT

DRUGS (1)
  1. MEPOLIZUMAB [Suspect]
     Active Substance: MEPOLIZUMAB
     Indication: Asthma
     Dosage: 100 MG, Z (MONTHLY)
     Route: 042
     Dates: start: 20200512

REACTIONS (3)
  - Atypical pneumonia [Recovering/Resolving]
  - Asthma [Unknown]
  - Malaise [Unknown]

NARRATIVE: CASE EVENT DATE: 20200901
